FAERS Safety Report 9612005 (Version 1)
Quarter: 2013Q4

REPORT INFORMATION
  Report Type: Spontaneous
  Country: DK (occurrence: NO)
  Receive Date: 20131010
  Receipt Date: 20131010
  Transmission Date: 20140711
  Serious: Yes (Hospitalization)
  Sender: FDA-Public Use
  Company Number: NO-FRI-1000049868

PATIENT
  Age: 46 Year
  Sex: Female

DRUGS (5)
  1. ESCITALOPRAM [Suspect]
     Indication: DEPRESSION
     Dosage: 10 MG DAILY, DOSE DECREASED /JAN/2013 AND DISCONTINUED /FEB/2013
     Dates: start: 201206, end: 201302
  2. REMERON-S [Suspect]
     Indication: DEPRESSION
     Dosage: 0.25 MG
     Dates: start: 201211, end: 201302
  3. REMERON [Suspect]
     Indication: ANXIETY
     Dosage: 15 MG
     Dates: start: 201206, end: 201211
  4. REMERON [Suspect]
     Indication: DEPRESSION
  5. TRIOBE [Concomitant]
     Dosage: 1 DF

REACTIONS (2)
  - Mania [Recovered/Resolved]
  - Economic problem [Unknown]
